FAERS Safety Report 8181197-7 (Version None)
Quarter: 2012Q1

REPORT INFORMATION
  Report Type: 
  Country: None (occurrence: None)
  Receive Date: 20120302
  Receipt Date: 20111213
  Transmission Date: 20120608
  Serious: Yes (Hospitalization)
  Sender: FDA-Public Use
  Company Number: JP-GLAXOSMITHKLINE-B0769988A

PATIENT
  Sex: Female
  Weight: 49 kg

DRUGS (42)
  1. MAGNESIUM SULFATE [Concomitant]
     Route: 048
     Dates: start: 20100606, end: 20100608
  2. LAXOBERON [Concomitant]
     Route: 048
     Dates: start: 20100611, end: 20100611
  3. LOPERAMIDE HCL [Concomitant]
     Route: 048
     Dates: start: 20100531, end: 20100601
  4. MAGNESIUM SULFATE [Concomitant]
     Route: 048
     Dates: start: 20100615, end: 20100616
  5. PANTOSIN [Concomitant]
     Route: 048
     Dates: start: 20100613, end: 20100613
  6. PURSENNID [Concomitant]
     Route: 048
     Dates: start: 20100529, end: 20100530
  7. TYKERB [Suspect]
     Dosage: 1000MG PER DAY
     Route: 048
     Dates: start: 20100610, end: 20100613
  8. TYKERB [Suspect]
     Dosage: 1000MG PER DAY
     Route: 048
     Dates: start: 20100625, end: 20100628
  9. XELODA [Suspect]
     Indication: BREAST CANCER
     Dosage: 3000MG PER DAY
     Route: 048
     Dates: start: 20100521, end: 20100613
  10. ZOLPIDEM [Concomitant]
     Indication: INSOMNIA
     Route: 048
     Dates: start: 20100521, end: 20100628
  11. FUROSEMIDE [Concomitant]
     Indication: OEDEMA
     Route: 048
     Dates: start: 20100521, end: 20100628
  12. MAGNESIUM SULFATE [Concomitant]
     Route: 048
     Dates: start: 20100613, end: 20100613
  13. LAXOBERON [Concomitant]
     Route: 048
     Dates: start: 20100614, end: 20100615
  14. LOPERAMIDE HCL [Concomitant]
     Indication: PROPHYLAXIS AGAINST DIARRHOEA
     Route: 048
     Dates: start: 20100524, end: 20100526
  15. POSTERISAN [Concomitant]
     Indication: ANAL HAEMORRHAGE
     Route: 061
     Dates: start: 20100602, end: 20100602
  16. KERATINAMIN [Concomitant]
     Indication: DERMATITIS
     Route: 061
     Dates: start: 20100612, end: 20100628
  17. MAGNESIUM SULFATE [Concomitant]
     Route: 048
     Dates: start: 20100529, end: 20100531
  18. MAGNESIUM SULFATE [Concomitant]
     Route: 048
     Dates: start: 20100602, end: 20100603
  19. PANTOSIN [Concomitant]
     Route: 048
     Dates: start: 20100602, end: 20100603
  20. POSTERISAN [Concomitant]
     Route: 061
     Dates: start: 20100604, end: 20100604
  21. ESTAZOLAM [Concomitant]
     Indication: INSOMNIA
     Route: 048
     Dates: start: 20100521, end: 20100628
  22. PURSENNID [Concomitant]
     Route: 048
     Dates: start: 20100611, end: 20100628
  23. XELODA [Suspect]
     Dosage: 2400MG PER DAY
     Route: 048
     Dates: start: 20100625, end: 20100628
  24. ATARAX [Concomitant]
     Indication: DERMATITIS
     Route: 048
     Dates: start: 20100521, end: 20100628
  25. BETAMETHASONE [Concomitant]
     Indication: DERMATITIS
     Route: 061
     Dates: start: 20100521, end: 20100628
  26. PRIMPERAN TAB [Concomitant]
     Indication: PROPHYLAXIS
     Route: 048
     Dates: start: 20100521, end: 20100628
  27. MUCOSTA [Concomitant]
     Route: 048
     Dates: start: 20100521, end: 20100628
  28. PANTOSIN [Concomitant]
     Route: 048
     Dates: start: 20100615, end: 20100616
  29. LOPERAMIDE HCL [Concomitant]
     Route: 048
     Dates: start: 20100603, end: 20100613
  30. LANSOPRAZOLE [Concomitant]
     Indication: GASTRITIS PROPHYLAXIS
     Route: 048
     Dates: start: 20100521, end: 20100628
  31. PROCHLORPERAZINE [Concomitant]
     Indication: PROPHYLAXIS
     Route: 048
     Dates: start: 20100605, end: 20100619
  32. LENDORMIN [Concomitant]
     Indication: INSOMNIA
     Route: 048
     Dates: start: 20100521, end: 20100628
  33. LOXONIN [Concomitant]
     Indication: BACK PAIN
     Route: 048
     Dates: start: 20100521, end: 20100628
  34. OXATOMIDE [Concomitant]
     Indication: RHINITIS ALLERGIC
     Route: 048
     Dates: start: 20100521, end: 20100628
  35. TYKERB [Suspect]
     Indication: BREAST CANCER
     Dosage: 1250MG PER DAY
     Route: 048
     Dates: start: 20100521, end: 20100609
  36. VOLTAREN [Concomitant]
     Indication: BACK PAIN
     Route: 048
     Dates: start: 20100523, end: 20100625
  37. VOLTAREN [Concomitant]
     Route: 054
     Dates: start: 20100530, end: 20100620
  38. CELESTAMINE TAB [Concomitant]
     Indication: DERMATITIS
     Route: 048
     Dates: start: 20100521, end: 20100628
  39. PANTOSIN [Concomitant]
     Route: 048
     Dates: start: 20100529, end: 20100531
  40. PANTOSIN [Concomitant]
     Route: 048
     Dates: start: 20100606, end: 20100608
  41. LECICARBON [Concomitant]
     Route: 054
     Dates: start: 20100528, end: 20100529
  42. SCOPOLAMINE [Concomitant]
     Indication: ABDOMINAL PAIN
     Dates: start: 20100525, end: 20100525

REACTIONS (3)
  - STOMATITIS [None]
  - ARTHRALGIA [None]
  - DIARRHOEA [None]
